FAERS Safety Report 21843738 (Version 1)
Quarter: 2023Q1

REPORT INFORMATION
  Report Type: Spontaneous
  Country: US (occurrence: None)
  Receive Date: 20230109
  Receipt Date: 20230109
  Transmission Date: 20230417
  Serious: No
  Sender: FDA-Public Use
  Company Number: None

PATIENT
  Age: 64 Year
  Sex: Female

DRUGS (1)
  1. AVSOLA [Suspect]
     Active Substance: INFLIXIMAB-AXXQ
     Route: 042
     Dates: start: 20220920

REACTIONS (2)
  - Wrong dose [None]
  - Product dispensing error [None]

NARRATIVE: CASE EVENT DATE: 20221107
